FAERS Safety Report 25386505 (Version 1)
Quarter: 2025Q2

REPORT INFORMATION
  Report Type: Spontaneous
  Country: PT (occurrence: PT)
  Receive Date: 20250602
  Receipt Date: 20250602
  Transmission Date: 20250717
  Serious: Yes (Other)
  Sender: MERCK SHARP & DOHME LLC
  Company Number: PT-009507513-2289199

PATIENT
  Age: 79 Year
  Sex: Male

DRUGS (1)
  1. PEMBROLIZUMAB [Suspect]
     Active Substance: PEMBROLIZUMAB
     Indication: Bladder transitional cell carcinoma
     Dates: start: 202204, end: 202504

REACTIONS (3)
  - Obstructive nephropathy [Recovered/Resolved]
  - Malignant neoplasm progression [Unknown]
  - Therapy partial responder [Unknown]

NARRATIVE: CASE EVENT DATE: 20231101
